FAERS Safety Report 4561637-2 (Version None)
Quarter: 2005Q1

REPORT INFORMATION
  Report Type: 
  Country: None (occurrence: None)
  Receive Date: 20050126
  Receipt Date: 20050120
  Transmission Date: 20050727
  Serious: Yes (Other)
  Sender: FDA-Public Use
  Company Number: GB-GLAXOSMITHKLINE-B0365190A

PATIENT
  Age: 44 Year
  Sex: Male
  Weight: 30 kg

DRUGS (6)
  1. AVANDIA [Suspect]
     Indication: DIABETES MELLITUS
     Dosage: 4MG PER DAY
     Route: 048
     Dates: start: 20040714, end: 20041208
  2. FELODIPINE [Concomitant]
     Dosage: 5MG PER DAY
     Route: 048
  3. GLICLAZIDE [Concomitant]
     Dosage: 80MG PER DAY
     Route: 048
  4. METFORMIN HCL [Concomitant]
     Dosage: 500MG PER DAY
     Route: 048
  5. BENDROFLUAZIDE [Concomitant]
     Dosage: 2.5MG PER DAY
     Route: 048
  6. ENALAPRIL [Concomitant]
     Dosage: 20MG PER DAY
     Route: 048

REACTIONS (2)
  - HYPERCHOLESTEROLAEMIA [None]
  - HYPERTRIGLYCERIDAEMIA [None]
